FAERS Safety Report 10446751 (Version 3)
Quarter: 2015Q2

REPORT INFORMATION
  Report Type: Spontaneous
  Country: FR (occurrence: FR)
  Receive Date: 20140911
  Receipt Date: 20150505
  Transmission Date: 20150821
  Serious: Yes (Hospitalization)
  Sender: FDA-Public Use
  Company Number: FR-JNJFOC-20140907157

PATIENT
  Age: 55 Year
  Sex: Female

DRUGS (5)
  1. ENBREL [Concomitant]
     Active Substance: ETANERCEPT
     Indication: PSORIATIC ARTHROPATHY
     Route: 058
     Dates: start: 2009, end: 2012
  2. HUMIRA [Concomitant]
     Active Substance: ADALIMUMAB
     Indication: PSORIATIC ARTHROPATHY
     Route: 058
     Dates: start: 2012, end: 2014
  3. SIMPONI [Suspect]
     Active Substance: GOLIMUMAB
     Indication: PSORIATIC ARTHROPATHY
     Route: 058
     Dates: start: 20141110, end: 20150130
  4. ARCOXIA [Concomitant]
     Active Substance: ETORICOXIB
     Route: 065
     Dates: start: 201404
  5. SIMPONI [Suspect]
     Active Substance: GOLIMUMAB
     Indication: PSORIATIC ARTHROPATHY
     Dosage: 1 DF
     Route: 058
     Dates: start: 20140619, end: 20140619

REACTIONS (21)
  - Dizziness [Recovered/Resolved]
  - Vision blurred [Recovered/Resolved]
  - Dysarthria [Not Recovered/Not Resolved]
  - Bradycardia [Recovering/Resolving]
  - Paraesthesia oral [Not Recovered/Not Resolved]
  - Hypotonia [Recovering/Resolving]
  - Visual acuity reduced [Unknown]
  - Balance disorder [Recovered/Resolved]
  - Anaesthesia [Recovering/Resolving]
  - Clonus [Recovering/Resolving]
  - Oesophagitis [Recovering/Resolving]
  - Thymus disorder [Unknown]
  - Malaise [Unknown]
  - Affective disorder [Recovering/Resolving]
  - Dysarthria [Recovered/Resolved]
  - Headache [Recovering/Resolving]
  - Pyrexia [Unknown]
  - General physical health deterioration [Unknown]
  - Asthenia [Not Recovered/Not Resolved]
  - Arthralgia [Recovering/Resolving]
  - Muscular weakness [Unknown]

NARRATIVE: CASE EVENT DATE: 20140701
